FAERS Safety Report 5927480-4 (Version None)
Quarter: 2008Q4

REPORT INFORMATION
  Report Type: 
  Country: None (occurrence: None)
  Receive Date: 20081023
  Receipt Date: 20081021
  Transmission Date: 20090506
  Serious: No
  Sender: FDA-Public Use
  Company Number: US-BAYER-200835002NA

PATIENT
  Age: 44 Year
  Sex: Male

DRUGS (2)
  1. AVELOX [Suspect]
     Indication: BRONCHITIS
     Dosage: UNIT DOSE: 400 MG
     Route: 048
     Dates: start: 20080925, end: 20080927
  2. PROVENTIL [Concomitant]

REACTIONS (2)
  - PAIN IN EXTREMITY [None]
  - TENDONITIS [None]
